FAERS Safety Report 5629386-7 (Version None)
Quarter: 2008Q1

REPORT INFORMATION
  Report Type: 
  Country: None (occurrence: None)
  Receive Date: 20080218
  Receipt Date: 20080214
  Transmission Date: 20080703
  Serious: Yes (Other)
  Sender: FDA-Public Use
  Company Number: B0507967A

PATIENT
  Age: 67 Year
  Sex: Male

DRUGS (1)
  1. ARRANON [Suspect]
     Dosage: 2500MG PER DAY
     Route: 042
     Dates: start: 20080116, end: 20080120

REACTIONS (2)
  - DEMENTIA [None]
  - DIZZINESS [None]
